FAERS Safety Report 18272740 (Version 1)
Quarter: 2020Q3

REPORT INFORMATION
  Report Type: Report from Study
  Country: JP (occurrence: JP)
  Receive Date: 20200916
  Receipt Date: 20200916
  Transmission Date: 20201103
  Serious: Yes (Other)
  Sender: FDA-Public Use
  Company Number: JP-JNJFOC-20200911784

PATIENT

DRUGS (5)
  1. ETANERCEPT [Suspect]
     Active Substance: ETANERCEPT
     Indication: PRODUCT USED FOR UNKNOWN INDICATION
     Route: 065
  2. REMICADE [Suspect]
     Active Substance: INFLIXIMAB
     Indication: PRODUCT USED FOR UNKNOWN INDICATION
     Route: 042
  3. CERTOLIZUMAB PEGOL [Suspect]
     Active Substance: CERTOLIZUMAB PEGOL
     Indication: PRODUCT USED FOR UNKNOWN INDICATION
     Route: 065
  4. ADALIMUMAB [Suspect]
     Active Substance: ADALIMUMAB
     Indication: PRODUCT USED FOR UNKNOWN INDICATION
     Route: 065
  5. SIMPONI [Suspect]
     Active Substance: GOLIMUMAB
     Indication: PRODUCT USED FOR UNKNOWN INDICATION
     Route: 058

REACTIONS (31)
  - Interstitial lung disease [Unknown]
  - Breast cancer [Unknown]
  - Liver disorder [Unknown]
  - Pyrexia [Unknown]
  - Pyelonephritis [Unknown]
  - White blood cell count decreased [Unknown]
  - Urinary tract infection [Unknown]
  - Blood pressure decreased [Unknown]
  - Anaphylactoid reaction [Unknown]
  - Sepsis [Unknown]
  - Pulmonary tuberculosis [Unknown]
  - Tuberculosis [Unknown]
  - Tuberculous pleurisy [Unknown]
  - Gastric cancer [Unknown]
  - Infusion related reaction [Unknown]
  - Pneumonia [Unknown]
  - Platelet count decreased [Unknown]
  - Cellulitis [Unknown]
  - Organising pneumonia [Unknown]
  - Pancytopenia [Unknown]
  - Lymphoma [Unknown]
  - Pneumonia bacterial [Unknown]
  - Disseminated tuberculosis [Unknown]
  - Intestinal obstruction [Unknown]
  - Hepatic function abnormal [Unknown]
  - Bronchitis [Unknown]
  - Pleurisy [Unknown]
  - Rash [Unknown]
  - Pneumocystis jirovecii pneumonia [Unknown]
  - Arthritis bacterial [Unknown]
  - Herpes zoster [Unknown]
